FAERS Safety Report 14474567 (Version 1)
Quarter: 2018Q1

REPORT INFORMATION
  Report Type: Spontaneous
  Country: US (occurrence: US)
  Receive Date: 20180201
  Receipt Date: 20180201
  Transmission Date: 20180509
  Serious: Yes (Other)
  Sender: FDA-Public Use
  Company Number: US-BAYER-2018-017402

PATIENT
  Age: 32 Year
  Sex: Female

DRUGS (2)
  1. MIRENA [Suspect]
     Active Substance: LEVONORGESTREL
     Dosage: 20 MCG/24HR, CONT
     Route: 015
     Dates: start: 2010, end: 201510
  2. MIRENA [Suspect]
     Active Substance: LEVONORGESTREL
     Dosage: 20 MCG/24HR, CONT
     Route: 015
     Dates: start: 201601

REACTIONS (9)
  - Idiopathic intracranial hypertension [None]
  - Blindness [None]
  - Headache [None]
  - Nausea [None]
  - Musculoskeletal pain [None]
  - Back pain [None]
  - Tinnitus [None]
  - Neck pain [None]
  - Vision blurred [None]
